FAERS Safety Report 6380061-3 (Version None)
Quarter: 2009Q3

REPORT INFORMATION
  Report Type: 
  Country: None (occurrence: None)
  Receive Date: 20090928
  Receipt Date: 20090917
  Transmission Date: 20100115
  Serious: Yes (Hospitalization)
  Sender: FDA-Public Use
  Company Number: US-ASTRAZENECA-2009SE13760

PATIENT
  Age: 29108 Day
  Sex: Male
  Weight: 66.2 kg

DRUGS (6)
  1. ATACAND [Suspect]
     Indication: HYPERTENSION
     Route: 048
     Dates: start: 20020101, end: 20081102
  2. AMITRIPTYLINE [Suspect]
     Indication: MUSCLE SPASMS
     Route: 048
     Dates: start: 20081001
  3. METOPROLOL TARTRATE [Suspect]
     Indication: HYPERTENSION
     Route: 048
     Dates: start: 20020101, end: 20081102
  4. TRAMADOL HYDROCHLORIDE [Suspect]
     Indication: PAIN
     Route: 048
     Dates: start: 20080219
  5. BLINDED VACCINE TRIAL MED INJECTION [Suspect]
     Route: 030
     Dates: start: 20081023, end: 20081023
  6. VALACYCLOVIR [Concomitant]
     Dates: start: 20081106

REACTIONS (2)
  - BRADYCARDIA [None]
  - RENAL FAILURE ACUTE [None]
